FAERS Safety Report 10219119 (Version 2)
Quarter: 2014Q2

REPORT INFORMATION
  Report Type: Spontaneous
  Country: US (occurrence: US)
  Receive Date: 20140605
  Receipt Date: 20140605
  Transmission Date: 20141212
  Serious: No
  Sender: FDA-Public Use
  Company Number: US-PFIZER INC-2014116467

PATIENT
  Age: 63 Year
  Sex: Female
  Weight: 63.49 kg

DRUGS (8)
  1. ELIQUIS [Suspect]
     Dosage: 5 MG, 2X/DAY
     Route: 048
     Dates: start: 20140315, end: 20140319
  2. METOPROLOL TARTRATE [Suspect]
     Dosage: 50 MG, DAILY
  3. EFFEXOR XR [Suspect]
     Indication: DEPRESSION
     Dosage: 150 MG, DAILY
     Route: 048
  4. LITHIUM [Suspect]
     Indication: DEPRESSION
     Dosage: 300 MG, 2X/DAY
  5. LAMOTRIGINE [Concomitant]
     Dosage: 200 MG, DAILY
  6. SYNTHROID [Concomitant]
     Dosage: 75 UG, DAILY
  7. FISH OIL [Concomitant]
     Dosage: UNK
  8. MULTIVITAMIN [Concomitant]
     Dosage: UNK

REACTIONS (3)
  - Dizziness [Recovered/Resolved]
  - Asthenia [Recovered/Resolved]
  - Headache [Recovered/Resolved]
